FAERS Safety Report 6901748-7 (Version None)
Quarter: 2010Q3

REPORT INFORMATION
  Report Type: 
  Country: None (occurrence: None)
  Receive Date: 20100803
  Receipt Date: 20080306
  Transmission Date: 20110219
  Serious: No
  Sender: FDA-Public Use
  Company Number: US-PFIZER INC-2008021274

PATIENT
  Sex: Female

DRUGS (1)
  1. LYRICA [Suspect]
     Dates: start: 20080222

REACTIONS (1)
  - FATIGUE [None]
